FAERS Safety Report 18702616 (Version 2)
Quarter: 2022Q4

REPORT INFORMATION
  Report Type: Spontaneous
  Country: IT (occurrence: IT)
  Receive Date: 20210105
  Receipt Date: 20221222
  Transmission Date: 20230112
  Serious: Yes (Other)
  Sender: FDA-Public Use
  Company Number: IT-NOVARTISPH-NVSC2021IT001026

PATIENT
  Age: 30 Year
  Sex: Male

DRUGS (3)
  1. CYCLOSPORINE [Suspect]
     Active Substance: CYCLOSPORINE
     Indication: Erythrodermic psoriasis
     Dosage: 150-200 MG/QD
     Route: 065
  2. ETANERCEPT [Concomitant]
     Active Substance: ETANERCEPT
     Indication: Erythrodermic psoriasis
     Dosage: 50 MG, Q2W, INDUCTION DOSAGE
     Route: 065
  3. ETANERCEPT [Concomitant]
     Active Substance: ETANERCEPT
     Dosage: 50 MG, QW, MAINTENANCE DOSAGE
     Route: 065

REACTIONS (4)
  - Cushing^s syndrome [Unknown]
  - Hepatic enzyme increased [Unknown]
  - Dyslipidaemia [Unknown]
  - Concomitant disease progression [Unknown]
